FAERS Safety Report 9786993 (Version 1)
Quarter: 2013Q4

REPORT INFORMATION
  Report Type: Spontaneous
  Country: GB (occurrence: GB)
  Receive Date: 20131227
  Receipt Date: 20131227
  Transmission Date: 20140711
  Serious: Yes (Other)
  Sender: FDA-Public Use
  Company Number: PHHY2013GB150771

PATIENT
  Sex: Male

DRUGS (2)
  1. TAMSULOSIN [Suspect]
     Indication: LOWER URINARY TRACT SYMPTOMS
     Route: 065
  2. TAMSULOSIN [Suspect]
     Indication: BENIGN PROSTATIC HYPERPLASIA

REACTIONS (2)
  - Surgery [Unknown]
  - Drug ineffective [Unknown]
